FAERS Safety Report 16207644 (Version 1)
Quarter: 2019Q2

REPORT INFORMATION
  Report Type: Spontaneous
  Country: US (occurrence: US)
  Receive Date: 20190417
  Receipt Date: 20190417
  Transmission Date: 20190711
  Serious: Yes (Death, Hospitalization)
  Sender: FDA-Public Use
  Company Number: US-JNJFOC-20190423125

PATIENT
  Sex: Female

DRUGS (1)
  1. XARELTO [Suspect]
     Active Substance: RIVAROXABAN
     Indication: PRODUCT USED FOR UNKNOWN INDICATION
     Route: 048
     Dates: start: 20140328, end: 20151224

REACTIONS (3)
  - Gastrointestinal haemorrhage [Fatal]
  - Respiratory failure [Fatal]
  - Aspiration [Fatal]

NARRATIVE: CASE EVENT DATE: 20151224
